FAERS Safety Report 5083185-6 (Version None)
Quarter: 2006Q3

REPORT INFORMATION
  Report Type: 
  Country: None (occurrence: None)
  Receive Date: 20060818
  Receipt Date: 20060512
  Transmission Date: 20061208
  Serious: Yes (Other)
  Sender: FDA-Public Use
  Company Number: PHEH2006US06354

PATIENT
  Age: 68 Year
  Sex: Male

DRUGS (12)
  1. ZOMETA [Suspect]
     Indication: MULTIPLE MYELOMA
     Dosage: 4 MG, QMO
     Dates: start: 20031001, end: 20060411
  2. AREDIA [Suspect]
     Indication: MULTIPLE MYELOMA
     Dosage: 90 MG, QMO
     Dates: start: 20021201, end: 20030801
  3. BETAPACE [Concomitant]
  4. OXYCODONE HCL [Concomitant]
  5. KLONOPIN [Concomitant]
  6. LEXAPRO [Concomitant]
  7. FUROSEMIDE [Concomitant]
  8. LISINOPRIL [Concomitant]
  9. SPIRONOLACTONE [Concomitant]
  10. LORAZEPAM [Concomitant]
  11. PLAVIX [Concomitant]
  12. PREDNISONE [Concomitant]
     Indication: ARTHRITIS
     Dosage: 5 MG, QD

REACTIONS (6)
  - BONE DISORDER [None]
  - MASS [None]
  - OSTEONECROSIS [None]
  - PAIN [None]
  - PAIN IN JAW [None]
  - TOOTH EXTRACTION [None]
